FAERS Safety Report 18773182 (Version 1)
Quarter: 2021Q1

REPORT INFORMATION
  Report Type: Spontaneous
  Country: US (occurrence: US)
  Receive Date: 20210121
  Receipt Date: 20210121
  Transmission Date: 20210419
  Serious: Yes (Hospitalization)
  Sender: FDA-Public Use
  Company Number: None

PATIENT
  Age: 84 Year
  Sex: Male
  Weight: 82 kg

DRUGS (1)
  1. HYDROCHLOROTHIAZIDE (HYDROCHLOROTHIAZIDE 25MG TAB) [Suspect]
     Active Substance: HYDROCHLOROTHIAZIDE
     Indication: HYPERTENSION
     Route: 048
     Dates: start: 20180320, end: 20191001

REACTIONS (9)
  - Asthenia [None]
  - Blood sodium decreased [None]
  - Back pain [None]
  - Nausea [None]
  - Chills [None]
  - Dehydration [None]
  - Hyponatraemia [None]
  - Dysuria [None]
  - Sedation [None]

NARRATIVE: CASE EVENT DATE: 20190927
